FAERS Safety Report 24221493 (Version 1)
Quarter: 2024Q3

REPORT INFORMATION
  Report Type: Report from Study
  Country: US (occurrence: None)
  Receive Date: 20240819
  Receipt Date: 20240819
  Transmission Date: 20241016
  Serious: Yes (Hospitalization)
  Sender: ASTRAZENECA
  Company Number: 2022A364709

PATIENT
  Sex: Male

DRUGS (1)
  1. SAPHNELO [Suspect]
     Active Substance: ANIFROLUMAB-FNIA
     Indication: Multiple sclerosis
     Dosage: 300MG/2ML300MG/ML EVERY FOUR WEEKS
     Route: 042
     Dates: start: 202206

REACTIONS (3)
  - Kidney infection [Unknown]
  - Pneumonia [Unknown]
  - Cardiac disorder [Unknown]
